FAERS Safety Report 7625424-0 (Version None)
Quarter: 2011Q3

REPORT INFORMATION
  Report Type: 
  Country: None (occurrence: None)
  Receive Date: 20110721
  Receipt Date: 20110711
  Transmission Date: 20111222
  Serious: Yes (Hospitalization)
  Sender: FDA-Public Use
  Company Number: US-JNJFOC-20110704862

PATIENT
  Sex: Male
  Weight: 72.58 kg

DRUGS (4)
  1. PANTOPRAZOLE [Concomitant]
     Indication: GASTROOESOPHAGEAL REFLUX DISEASE
  2. PURINETHOL [Concomitant]
     Indication: CROHN'S DISEASE
     Dates: start: 20050101
  3. REMICADE [Suspect]
     Indication: CROHN'S DISEASE
     Route: 042
     Dates: start: 20110401
  4. HYDROCODONE [Concomitant]
     Indication: PAIN

REACTIONS (3)
  - PANCREATITIS [None]
  - RASH [None]
  - HYPERHIDROSIS [None]
